FAERS Safety Report 4390991-X (Version None)
Quarter: 2004Q3

REPORT INFORMATION
  Report Type: 
  Country: None (occurrence: None)
  Receive Date: 20040701
  Receipt Date: 20040701
  Transmission Date: 20050211
  Serious: Yes (Other)
  Sender: FDA-Public Use
  Company Number: None

PATIENT
  Sex: Male
  Weight: 83.4619 kg

DRUGS (1)
  1. MORPHINE SUL INJ [Suspect]
     Indication: PAIN
     Dosage: 10 MG IV
     Route: 042

REACTIONS (2)
  - ERYTHEMA [None]
  - URTICARIA [None]
